FAERS Safety Report 8888269 (Version 4)
Quarter: 2012Q4

REPORT INFORMATION
  Report Type: 
  Country: JP (occurrence: JP)
  Receive Date: 20121106
  Receipt Date: 20121219
  Transmission Date: 20130627
  Serious: Yes (Death)
  Sender: FDA-Public Use
  Company Number: JP-PFIZER INC-2012272819

PATIENT
  Age: 10 Year
  Sex: Male
  Weight: 50 kg

DRUGS (8)
  1. JZOLOFT [Suspect]
     Indication: ANXIETY
     Dosage: 25 mg, 1x/day
     Route: 048
     Dates: start: 20120914, end: 20121016
  2. JAPANESE ENCEPHALITIS VACCINE [Suspect]
     Dosage: UNK
     Dates: start: 201210
  3. ABILIFY [Suspect]
     Indication: HYPERSENSITIVITY
     Dosage: 3 mg, 1x/day
     Route: 048
     Dates: start: 20100519
  4. ORAP [Suspect]
     Indication: BULIMIA
     Dosage: 1.5 mg, 1x/day
     Route: 048
     Dates: start: 20120413, end: 20120517
  5. ORAP [Suspect]
     Indication: SEDATION
     Dosage: 3 mg, 1x/day
     Route: 048
     Dates: start: 20120518
  6. ORAP [Suspect]
     Indication: PROPHYLAXIS
  7. RISPERDAL [Suspect]
     Indication: SEDATION
     Dosage: 0.5 mg, as needed
     Route: 048
     Dates: start: 20110309, end: 20120305
  8. ZYPREXA [Suspect]
     Indication: SEDATION
     Dosage: 2.5 mg, 1x/day
     Route: 048
     Dates: start: 20110404, end: 20120305

REACTIONS (1)
  - Death [Fatal]
